FAERS Safety Report 10227072 (Version 2)
Quarter: 2014Q2

REPORT INFORMATION
  Report Type: Report from Study
  Country: US (occurrence: US)
  Receive Date: 20140610
  Receipt Date: 20140610
  Transmission Date: 20141212
  Serious: Yes (Hospitalization, Other)
  Sender: FDA-Public Use
  Company Number: US-ROCHE-1412217

PATIENT
  Age: 15 Year
  Sex: Male
  Weight: 42.7 kg

DRUGS (22)
  1. NUTROPIN AQ [Suspect]
     Indication: RENAL FAILURE CHRONIC
     Route: 058
     Dates: end: 201303
  2. ACTIVASE [Suspect]
     Indication: PRODUCT USED FOR UNKNOWN INDICATION
     Dosage: QMWF
     Route: 042
  3. ACETAMINOPHEN [Suspect]
     Indication: DISCOMFORT
     Dosage: PRN
     Route: 048
  4. ACETAMINOPHEN [Suspect]
     Indication: PYREXIA
  5. FAT EMULSION 20% [Concomitant]
     Dosage: QMWF 20% 35 GM /175 ML
     Route: 042
  6. EPOETIN ALFA [Concomitant]
     Dosage: 1,000 UNITS/.5 ML QMWF
     Route: 042
  7. HEPARIN [Concomitant]
     Dosage: LOAD/ADDITIONAL DOSE 700 UNITS/.7 ML QMWF
     Route: 042
  8. PARICALCITOL [Concomitant]
     Dosage: QMWF
     Route: 042
  9. EPINEPHRINE [Concomitant]
     Indication: HYPERSENSITIVITY
     Dosage: 0.3 MG / 0.3 ML AS NEEDED
     Route: 030
  10. SEVELAMER [Concomitant]
     Route: 048
  11. ALBUTEROL [Concomitant]
     Dosage: 2 PUFFS INHALED Q4HR
     Route: 048
  12. CALCIUM ACETATE [Concomitant]
     Route: 048
  13. CHOLECALCIFEROL [Concomitant]
     Dosage: 1 ,000 UNITS
     Route: 048
  14. CINACALCET [Concomitant]
     Route: 048
  15. CLINDAMYCIN [Concomitant]
     Route: 048
  16. DOCUSATE [Concomitant]
     Route: 048
  17. ESCITALOPRAM [Concomitant]
     Route: 048
  18. IBUPROFEN [Concomitant]
     Route: 048
  19. ISRADIPINE [Concomitant]
     Dosage: PRN
     Route: 048
  20. SODIUM POLYSTYRENE SULFONATE [Concomitant]
     Dosage: 15 GM ORAL ONCE
     Route: 048
  21. SULFAMETHOXAZOLE/TRIMETHOPRIM [Concomitant]
     Dosage: 400-80MG ORAL TABLET, 0.5 TAB AT BEDTIME
     Route: 048
  22. TACROLIMUS [Concomitant]
     Route: 048

REACTIONS (10)
  - Arthralgia [Unknown]
  - Arthralgia [Unknown]
  - Vomiting [Unknown]
  - Gastritis [Unknown]
  - Hyperphosphataemia [Unknown]
  - Constipation [Unknown]
  - Pyrexia [Unknown]
  - Wheezing [Unknown]
  - Device malfunction [Unknown]
  - Viral infection [Unknown]
